FAERS Safety Report 6725777-1 (Version None)
Quarter: 2010Q2

REPORT INFORMATION
  Report Type: 
  Country: None (occurrence: None)
  Receive Date: 20100512
  Receipt Date: 20100504
  Transmission Date: 20101027
  Serious: Yes (Hospitalization)
  Sender: FDA-Public Use
  Company Number: 2010SP025032

PATIENT
  Age: 48 Year
  Sex: Female

DRUGS (5)
  1. PEG-INTRON [Suspect]
     Indication: HEPATITIS
     Dosage: 80 MCG;QW
     Dates: start: 20091201, end: 20100115
  2. REBETOL [Suspect]
     Indication: HEPATITIS
     Dosage: 800 MG;QD
     Dates: start: 20091201, end: 20100115
  3. DIAZEPAM [Concomitant]
  4. ACETAMINOPHEN W/ CODEINE [Concomitant]
  5. ARTHROTEC [Concomitant]

REACTIONS (3)
  - AGITATION [None]
  - CONFUSIONAL STATE [None]
  - FATIGUE [None]
